FAERS Safety Report 11995837 (Version 2)
Quarter: 2016Q1

REPORT INFORMATION
  Report Type: Report from Study
  Country: US (occurrence: US)
  Receive Date: 20160203
  Receipt Date: 20160315
  Transmission Date: 20160526
  Serious: No
  Sender: FDA-Public Use
  Company Number: PHHY2014US112437

PATIENT
  Age: 61 Year
  Sex: Male

DRUGS (2)
  1. GILENYA [Suspect]
     Active Substance: FINGOLIMOD HYDROCHLORIDE
     Indication: MULTIPLE SCLEROSIS
     Route: 048
  2. SERTRALINE [Concomitant]
     Active Substance: SERTRALINE HYDROCHLORIDE
     Indication: DEPRESSION
     Route: 065
     Dates: start: 20140411

REACTIONS (8)
  - Glossodynia [Recovered/Resolved]
  - Gait disturbance [Unknown]
  - Herpes simplex [Recovered/Resolved]
  - Animal bite [Recovered/Resolved]
  - Paraesthesia [Recovered/Resolved]
  - Trigeminal neuralgia [Recovered/Resolved]
  - Cognitive disorder [Unknown]
  - Oral herpes [Unknown]

NARRATIVE: CASE EVENT DATE: 20140718
